FAERS Safety Report 12000422 (Version 1)
Quarter: 2016Q1

REPORT INFORMATION
  Report Type: Report from Study
  Country: US (occurrence: US)
  Receive Date: 20160204
  Receipt Date: 20160204
  Transmission Date: 20160526
  Serious: No
  Sender: FDA-Public Use
  Company Number: US-ABBVIE-15K-163-1420461-00

PATIENT
  Age: 60 Year
  Sex: Female
  Weight: 94.43 kg

DRUGS (4)
  1. HUMIRA [Suspect]
     Active Substance: ADALIMUMAB
     Route: 065
     Dates: start: 20150701
  2. HUMIRA [Suspect]
     Active Substance: ADALIMUMAB
     Indication: PSORIASIS
     Route: 065
     Dates: start: 20150624, end: 20150624
  3. BOTOX [Suspect]
     Active Substance: ONABOTULINUMTOXINA
     Indication: MIGRAINE
     Route: 065
  4. HUMIRA [Suspect]
     Active Substance: ADALIMUMAB
     Dosage: 2-3 MONTHS
     Route: 058
     Dates: start: 2015

REACTIONS (9)
  - Injection site pain [Not Recovered/Not Resolved]
  - Incorrect dose administered [Not Recovered/Not Resolved]
  - Nausea [Not Recovered/Not Resolved]
  - Wrong technique in product usage process [Unknown]
  - Migraine [Not Recovered/Not Resolved]
  - Incorrect dose administered [Unknown]
  - Petechiae [Not Recovered/Not Resolved]
  - Nausea [Recovered/Resolved]
  - Device issue [Unknown]

NARRATIVE: CASE EVENT DATE: 2015
